FAERS Safety Report 24394382 (Version 1)
Quarter: 2024Q4

REPORT INFORMATION
  Report Type: Report from Study
  Country: US (occurrence: US)
  Receive Date: 20241004
  Receipt Date: 20241004
  Transmission Date: 20250115
  Serious: Yes (Other)
  Sender: CIPLA
  Company Number: US-CIPLA LTD.-2024US10846

PATIENT

DRUGS (2)
  1. IRINOTECAN [Suspect]
     Active Substance: IRINOTECAN
     Indication: Non-small cell lung cancer recurrent
     Dosage: 100 MG/M2
     Route: 065
  2. VALEMETOSTAT [Suspect]
     Active Substance: VALEMETOSTAT
     Indication: Non-small cell lung cancer recurrent
     Dosage: 100 MG, DAILY
     Route: 048

REACTIONS (2)
  - Atrial fibrillation [Unknown]
  - Febrile neutropenia [Unknown]
